FAERS Safety Report 6381438-2 (Version None)
Quarter: 2009Q3

REPORT INFORMATION
  Report Type: 
  Country: None (occurrence: None)
  Receive Date: 20090924
  Receipt Date: 20090924
  Transmission Date: 20100115
  Serious: Yes (Hospitalization)
  Sender: FDA-Public Use
  Company Number: 002710

PATIENT
  Age: 83 Year
  Sex: Male

DRUGS (6)
  1. MACUGEN [Suspect]
     Indication: MACULAR DEGENERATION
     Dates: start: 20090811, end: 20090811
  2. MACUGEN [Suspect]
     Indication: MACULOPATHY
     Dates: start: 20090811, end: 20090811
  3. AVASTIN [Concomitant]
  4. BENOXIL (OXYBUPROCAINE) [Concomitant]
  5. GATIFLOXACIN [Concomitant]
  6. LEVOFLOXACIN [Concomitant]

REACTIONS (1)
  - ENDOPHTHALMITIS [None]
